FAERS Safety Report 4287840-7 (Version None)
Quarter: 2004Q1

REPORT INFORMATION
  Report Type: 
  Country: None (occurrence: None)
  Receive Date: 20040209
  Receipt Date: 20031007
  Transmission Date: 20041129
  Serious: No
  Sender: FDA-Public Use
  Company Number: US-GLAXOSMITHKLINE-A0429241A

PATIENT
  Age: 63 Year
  Sex: Female

DRUGS (7)
  1. PAXIL [Suspect]
     Indication: DEPRESSION
     Route: 048
     Dates: start: 20030310
  2. PERCOCET [Concomitant]
  3. OXYCONTIN [Concomitant]
  4. FOSAMAX [Concomitant]
  5. EVISTA [Concomitant]
  6. CLARINEX [Concomitant]
  7. XANAX [Concomitant]

REACTIONS (1)
  - STOOL ANALYSIS ABNORMAL [None]
